FAERS Safety Report 24789393 (Version 3)
Quarter: 2025Q2

REPORT INFORMATION
  Report Type: Spontaneous
  Country: US (occurrence: None)
  Receive Date: 20241230
  Receipt Date: 20250402
  Transmission Date: 20250716
  Serious: Yes (Other)
  Sender: INCYTE
  Company Number: US-INCYTE CORPORATION-2024IN013501

PATIENT
  Age: 86 Year

DRUGS (2)
  1. JAKAFI [Suspect]
     Active Substance: RUXOLITINIB
     Indication: Product used for unknown indication
  2. JAKAFI [Suspect]
     Active Substance: RUXOLITINIB
     Dosage: 10 MILLIGRAM, QD (2X5 MG TABLETS)

REACTIONS (11)
  - Skin cancer [Unknown]
  - Haematochezia [Unknown]
  - Pollakiuria [Unknown]
  - Swelling face [Unknown]
  - Hypersomnia [Unknown]
  - Brain fog [Unknown]
  - Erythema [Unknown]
  - Skin ulcer [Unknown]
  - Dizziness [Unknown]
  - Fatigue [Not Recovered/Not Resolved]
  - Diarrhoea [Unknown]
